FAERS Safety Report 17671171 (Version 2)
Quarter: 2020Q2

REPORT INFORMATION
  Report Type: Spontaneous
  Country: DE (occurrence: DE)
  Receive Date: 20200415
  Receipt Date: 20200423
  Transmission Date: 20200713
  Serious: Yes (Hospitalization)
  Sender: FDA-Public Use
  Company Number: NVSC2020DE076524

PATIENT
  Age: 16 Month
  Sex: Female

DRUGS (10)
  1. CYTARABINE. [Suspect]
     Active Substance: CYTARABINE
     Indication: LANGERHANS^ CELL HISTIOCYTOSIS
     Dosage: UNK
     Route: 065
  2. VEMURAFENIB. [Suspect]
     Active Substance: VEMURAFENIB
     Indication: PRODUCT USED FOR UNKNOWN INDICATION
     Dosage: 480 MG, QD ADMINISTERED AS A CRUSHED SUSPENDED TABLETS
     Route: 048
  3. VINBLASTINE [Suspect]
     Active Substance: VINBLASTINE
     Dosage: UNK (3 WEEKLY PULSES; AS A PART OF INTENSIFIED LCH-III MAINTENANCE THERAPY )
     Route: 065
  4. PREDNISOLONE. [Suspect]
     Active Substance: PREDNISOLONE
     Indication: LANGERHANS^ CELL HISTIOCYTOSIS
     Dosage: 40 MG/M2, QD WITH DOSE TAPERING DURING WEEKS 5 AND 6; AS A PART OF LCH-III REGIMEN
     Route: 065
  5. PREDNISOLONE. [Suspect]
     Active Substance: PREDNISOLONE
     Dosage: UNK (3 WEEKLY PULSES; AS A PART OF INTENSIFIED LCH-III MAINTENANCE THERAPY )
     Route: 065
  6. PREDNISONE. [Suspect]
     Active Substance: PREDNISONE
     Indication: LANGERHANS^ CELL HISTIOCYTOSIS
     Dosage: UNK
     Route: 065
  7. 6-MERCAPTOPURINE MONOHYDRATE [Suspect]
     Active Substance: MERCAPTOPURINE
     Indication: LANGERHANS^ CELL HISTIOCYTOSIS
     Dosage: UNK (ADMINISTERED DAILY)
     Route: 065
  8. VINCRISTINE SULFATE. [Suspect]
     Active Substance: VINCRISTINE SULFATE
     Indication: LANGERHANS^ CELL HISTIOCYTOSIS
     Dosage: UNK
     Route: 065
  9. VINBLASTINE [Suspect]
     Active Substance: VINBLASTINE
     Indication: LANGERHANS^ CELL HISTIOCYTOSIS
     Dosage: 6 MG/M2, QW
     Route: 065
  10. METHOTREXATE. [Suspect]
     Active Substance: METHOTREXATE
     Indication: LANGERHANS^ CELL HISTIOCYTOSIS
     Dosage: UNK (ADMINISTERED WEEKLY)
     Route: 065

REACTIONS (5)
  - Treatment failure [Unknown]
  - Rash pruritic [Unknown]
  - Off label use [Unknown]
  - Skin irritation [Unknown]
  - Pyrexia [Unknown]
